FAERS Safety Report 18109342 (Version 1)
Quarter: 2020Q3

REPORT INFORMATION
  Report Type: Spontaneous
  Country: US (occurrence: US)
  Receive Date: 20200804
  Receipt Date: 20200804
  Transmission Date: 20201103
  Serious: Yes (Death)
  Sender: FDA-Public Use
  Company Number: None

PATIENT
  Age: 47 Year
  Sex: Female
  Weight: 115.65 kg

DRUGS (1)
  1. REMDESIVIR. [Suspect]
     Active Substance: REMDESIVIR
     Indication: COVID-19
     Dates: end: 20200708

REACTIONS (7)
  - Electrolyte imbalance [None]
  - Pyrexia [None]
  - Alanine aminotransferase increased [None]
  - General physical health deterioration [None]
  - Ventricular tachycardia [None]
  - Glomerular filtration rate decreased [None]
  - Multiple organ dysfunction syndrome [None]

NARRATIVE: CASE EVENT DATE: 20200710
